FAERS Safety Report 5005589-X (Version None)
Quarter: 2006Q2

REPORT INFORMATION
  Report Type: 
  Country: None (occurrence: None)
  Receive Date: 20060512
  Receipt Date: 20060428
  Transmission Date: 20061013
  Serious: Yes (Other)
  Sender: FDA-Public Use
  Company Number: DE200605000284

PATIENT
  Age: 23 Year
  Sex: Female

DRUGS (2)
  1. CYMBALTA [Suspect]
     Indication: DEPRESSION
     Dosage: 90 MG, ORAL
     Route: 048
     Dates: start: 20060101
  2. MIRTAZAPINE [Concomitant]

REACTIONS (6)
  - ACCIDENT [None]
  - ATRIOVENTRICULAR BLOCK SECOND DEGREE [None]
  - CONTUSION [None]
  - DRUG INTERACTION [None]
  - FALL [None]
  - TACHYCARDIA [None]
